FAERS Safety Report 7417295-2 (Version None)
Quarter: 2011Q2

REPORT INFORMATION
  Report Type: 
  Country: None (occurrence: None)
  Receive Date: 20110415
  Receipt Date: 20110407
  Transmission Date: 20111010
  Serious: Yes (Death, Hospitalization)
  Sender: FDA-Public Use
  Company Number: JP-BRISTOL-MYERS SQUIBB COMPANY-15652589

PATIENT
  Age: 16 Year

DRUGS (10)
  1. DACARBAZINE [Suspect]
     Indication: HODGKIN'S DISEASE
  2. VINCRISTINE [Suspect]
     Indication: HODGKIN'S DISEASE
  3. VINBLASTINE [Suspect]
     Indication: HODGKIN'S DISEASE
  4. BUSULFAN [Suspect]
     Indication: HODGKIN'S DISEASE
  5. ETOPOSIDE [Suspect]
     Indication: HODGKIN'S DISEASE
  6. BLEOMYCIN [Suspect]
     Indication: HODGKIN'S DISEASE
  7. PREDNISONE [Suspect]
     Indication: HODGKIN'S DISEASE
  8. CYCLOPHOSPHAMIDE [Suspect]
     Indication: HODGKIN'S DISEASE
  9. PROCARBAZINE [Suspect]
     Indication: HODGKIN'S DISEASE
  10. DOXORUBICIN [Suspect]
     Indication: HODGKIN'S DISEASE

REACTIONS (2)
  - PANCYTOPENIA [None]
  - PROGRESSIVE MULTIFOCAL LEUKOENCEPHALOPATHY [None]
